FAERS Safety Report 23547286 (Version 3)
Quarter: 2024Q1

REPORT INFORMATION
  Report Type: Spontaneous
  Country: JP (occurrence: JP)
  Receive Date: 20240221
  Receipt Date: 20240322
  Transmission Date: 20240410
  Serious: Yes (Life-Threatening, Hospitalization, Other)
  Sender: FDA-Public Use
  Company Number: JP-OPELLA-2024OHG001356

PATIENT
  Age: 19 Year
  Sex: Female
  Weight: 55 kg

DRUGS (11)
  1. ESCITALOPRAM [Interacting]
     Active Substance: ESCITALOPRAM OXALATE
     Indication: Eating disorder
  2. DEXTROMETHORPHAN [Interacting]
     Active Substance: DEXTROMETHORPHAN
     Indication: Suicide attempt
     Dosage: STRENGTH: 15 MG
     Route: 048
  3. ACETAMINOPHEN [Interacting]
     Active Substance: ACETAMINOPHEN
     Indication: Suicide attempt
     Route: 048
  4. CHLORPHENIRAMINE MALEATE [Interacting]
     Active Substance: CHLORPHENIRAMINE MALEATE
     Indication: Suicide attempt
     Route: 048
  5. CAFFEINE [Interacting]
     Active Substance: CAFFEINE
     Indication: Suicide attempt
     Route: 048
  6. DIHYDROCODEINE PHOSPHATE [Interacting]
     Active Substance: DIHYDROCODEINE PHOSPHATE
     Indication: Suicide attempt
     Route: 048
  7. IBUPROFEN [Interacting]
     Active Substance: IBUPROFEN
     Indication: Suicide attempt
     Route: 048
  8. METHYLEPHEDRINE [Interacting]
     Active Substance: METHYLEPHEDRINE
     Indication: Suicide attempt
     Route: 048
  9. LITHIUM [Concomitant]
     Active Substance: LITHIUM
     Indication: Eating disorder
  10. LITHIUM [Concomitant]
     Active Substance: LITHIUM
     Indication: Depression
  11. ESCITALOPRAM [Interacting]
     Active Substance: ESCITALOPRAM OXALATE
     Indication: Depression

REACTIONS (6)
  - Drug interaction [Recovered/Resolved]
  - Serotonin syndrome [Recovered/Resolved]
  - Toxic encephalopathy [Recovered/Resolved]
  - Electroencephalogram abnormal [Recovered/Resolved]
  - Coma [Recovered/Resolved]
  - Overdose [Recovered/Resolved]
